FAERS Safety Report 4545052-3 (Version None)
Quarter: 2005Q1

REPORT INFORMATION
  Report Type: 
  Country: None (occurrence: None)
  Receive Date: 20050103
  Receipt Date: 20041222
  Transmission Date: 20050727
  Serious: Yes (Death, Other)
  Sender: FDA-Public Use
  Company Number: 2004118922

PATIENT
  Age: 40 Day
  Sex: 0

DRUGS (1)
  1. FUMYCIN (FLUCONAZOLE) [Suspect]
     Indication: VAGINAL CANDIDIASIS
     Dosage: 150 MG (150 MG, 1 IN 1 D), ORAL
     Route: 048

REACTIONS (1)
  - DRUG EXPOSURE VIA BREAST MILK [None]
